FAERS Safety Report 7283618-0 (Version None)
Quarter: 2011Q1

REPORT INFORMATION
  Report Type: 
  Country: None (occurrence: None)
  Receive Date: 20110209
  Receipt Date: 20110204
  Transmission Date: 20110831
  Serious: Yes (Hospitalization)
  Sender: FDA-Public Use
  Company Number: B0698076A

PATIENT
  Sex: Male

DRUGS (5)
  1. TAHOR [Concomitant]
     Route: 065
  2. CARTROL [Concomitant]
     Route: 050
  3. AUGMENTIN [Suspect]
     Dosage: 1G SINGLE DOSE
     Route: 048
     Dates: start: 20101026
  4. ARTOTEC [Concomitant]
     Route: 065
  5. BETAHISTINE [Concomitant]
     Route: 065

REACTIONS (4)
  - HYPOTENSION [None]
  - LOSS OF CONSCIOUSNESS [None]
  - ERYTHEMA [None]
  - MALAISE [None]
